FAERS Safety Report 17843618 (Version 1)
Quarter: 2020Q2

REPORT INFORMATION
  Report Type: Spontaneous
  Country: US (occurrence: US)
  Receive Date: 20200531
  Receipt Date: 20200531
  Transmission Date: 20200714
  Serious: No
  Sender: FDA-Public Use
  Company Number: US-VISTAPHARM, INC.-VER202004-000803

PATIENT
  Sex: Male

DRUGS (2)
  1. METHADONE HCL TABLETS, USP 10 MG [Suspect]
     Active Substance: METHADONE HYDROCHLORIDE
     Indication: PRODUCT USED FOR UNKNOWN INDICATION
     Dosage: 170 MG OF 10 MG
     Route: 048
     Dates: start: 201906
  2. METHADONE HCL TABLETS, USP 10 MG [Suspect]
     Active Substance: METHADONE HYDROCHLORIDE
     Route: 048

REACTIONS (2)
  - Therapeutic product effect variable [Unknown]
  - Extra dose administered [Unknown]
